FAERS Safety Report 9247090 (Version 2)
Quarter: 2013Q2

REPORT INFORMATION
  Report Type: Report from Study
  Country: JP (occurrence: JP)
  Receive Date: 20130423
  Receipt Date: 20130603
  Transmission Date: 20140414
  Serious: Yes (Hospitalization)
  Sender: FDA-Public Use
  Company Number: JP-B.I. PHARMACEUTICALS,INC./RIDGEFIELD-2013-BI-10947NB

PATIENT
  Age: 81 Year
  Sex: Male
  Weight: 69.2 kg

DRUGS (5)
  1. PRADAXA [Suspect]
     Indication: CEREBROVASCULAR ACCIDENT PROPHYLAXIS
     Dosage: 220 MG
     Route: 048
     Dates: start: 20121228
  2. ARICEPT D [Concomitant]
     Dosage: 5 MG
     Route: 048
  3. IRBETAN [Concomitant]
     Dosage: 50 MG
     Route: 048
  4. EPADEL S [Concomitant]
     Dosage: 900 MG
     Route: 048
  5. KIPRES [Concomitant]
     Dosage: 10 MG
     Route: 048

REACTIONS (1)
  - Syncope [Recovered/Resolved]
